FAERS Safety Report 9373908 (Version 3)
Quarter: 2013Q4

REPORT INFORMATION
  Report Type: Report from Study
  Country: CA (occurrence: CA)
  Receive Date: 20130628
  Receipt Date: 20131126
  Transmission Date: 20140711
  Serious: Yes (Hospitalization, Other)
  Sender: FDA-Public Use
  Company Number: CA-ROCHE-1241217

PATIENT
  Sex: Male

DRUGS (7)
  1. AVASTIN [Suspect]
     Indication: COLORECTAL CANCER
     Route: 042
     Dates: start: 201106
  2. AVASTIN [Suspect]
     Route: 042
     Dates: start: 20130722, end: 20131105
  3. FOLINIC ACID [Suspect]
     Indication: COLORECTAL CANCER
     Route: 065
     Dates: start: 201106, end: 201305
  4. FLUOROURACIL [Suspect]
     Indication: COLORECTAL CANCER
     Route: 065
     Dates: start: 201106, end: 201305
  5. IRINOTECAN [Suspect]
     Indication: COLORECTAL CANCER
     Route: 065
     Dates: start: 201106, end: 201305
  6. ONDANSETRON [Concomitant]
  7. DEXAMETHASONE [Concomitant]

REACTIONS (4)
  - Intestinal mass [Unknown]
  - Liver disorder [Unknown]
  - Lung disorder [Unknown]
  - Disease progression [Not Recovered/Not Resolved]
